FAERS Safety Report 26191671 (Version 1)
Quarter: 2025Q4

REPORT INFORMATION
  Report Type: Spontaneous
  Country: US (occurrence: None)
  Receive Date: 20251223
  Receipt Date: 20251223
  Transmission Date: 20260118
  Serious: No
  Sender: INCYTE
  Company Number: US-INCYTE CORPORATION-2025IN013973

PATIENT
  Age: 76 Year
  Weight: 58.957 kg

DRUGS (6)
  1. JAKAFI [Suspect]
     Active Substance: RUXOLITINIB
     Indication: Myeloproliferative neoplasm
     Dosage: 20 MILLIGRAM, QD
     Route: 061
  2. VIT B COMPLEXE [VITAMINS NOS] [Concomitant]
     Indication: Product used for unknown indication
     Dosage: UNK
     Route: 065
  3. CALCIUM CARBONATE [Concomitant]
     Active Substance: CALCIUM CARBONATE
     Indication: Product used for unknown indication
     Dosage: UNK
     Route: 065
  4. CENTRUM ADULTS [Concomitant]
     Indication: Product used for unknown indication
     Dosage: UNK
     Route: 065
  5. JUBBONTI [DENOSUMAB] [Concomitant]
     Indication: Product used for unknown indication
     Dosage: UNK
     Route: 065
  6. LOSARTAN [Concomitant]
     Active Substance: LOSARTAN
     Indication: Product used for unknown indication
     Dosage: UNK
     Route: 065

REACTIONS (2)
  - Treatment noncompliance [Unknown]
  - Off label use [Unknown]
